FAERS Safety Report 17460340 (Version 2)
Quarter: 2020Q2

REPORT INFORMATION
  Report Type: Spontaneous
  Country: US (occurrence: US)
  Receive Date: 20200226
  Receipt Date: 20200422
  Transmission Date: 20200713
  Serious: No
  Sender: FDA-Public Use
  Company Number: US-PFIZER INC-2020082973

PATIENT
  Age: 56 Year
  Sex: Female

DRUGS (2)
  1. GOLD [Suspect]
     Active Substance: GOLD
     Dosage: UNK
  2. METHOTREXATE SODIUM. [Suspect]
     Active Substance: METHOTREXATE SODIUM
     Dosage: UNK

REACTIONS (3)
  - Drug ineffective [Unknown]
  - Hand deformity [Unknown]
  - Alopecia [Unknown]
